FAERS Safety Report 8954914 (Version 3)
Quarter: 2013Q1

REPORT INFORMATION
  Report Type: Spontaneous
  Country: ES (occurrence: ES)
  Receive Date: 20121210
  Receipt Date: 20130319
  Transmission Date: 20140127
  Serious: Yes (Life-Threatening, Hospitalization, Other)
  Sender: FDA-Public Use
  Company Number: ES-JNJFOC-20121200052

PATIENT
  Age: 60 Year
  Sex: Male
  Weight: 70 kg

DRUGS (2)
  1. REMICADE [Suspect]
     Indication: HIDRADENITIS
     Route: 042
     Dates: start: 20100924, end: 20121010
  2. REMICADE [Suspect]
     Indication: HIDRADENITIS
     Route: 042
     Dates: end: 2010

REACTIONS (6)
  - Pneumonia legionella [Recovered/Resolved]
  - Respiratory failure [Recovered/Resolved]
  - Septic shock [Recovered/Resolved]
  - Multi-organ failure [Recovered/Resolved]
  - Aspiration bronchial [Recovered/Resolved]
  - Disorientation [Unknown]
